FAERS Safety Report 22192435 (Version 2)
Quarter: 2023Q2

REPORT INFORMATION
  Report Type: Spontaneous
  Country: CN (occurrence: CN)
  Receive Date: 20230410
  Receipt Date: 20230615
  Transmission Date: 20230722
  Serious: Yes (Other)
  Sender: FDA-Public Use
  Company Number: CN-002147023-NVSC2023CN082307

PATIENT
  Sex: Female

DRUGS (5)
  1. LETROZOLE [Suspect]
     Active Substance: LETROZOLE
     Indication: Ovulation induction
     Dosage: 2.5 MG, QD
     Route: 048
  2. ATOSIBAN [Suspect]
     Active Substance: ATOSIBAN
     Indication: Product used for unknown indication
     Dosage: 6.75 MG (0.9 ML) (SMALL DOSE, INTRAVENOUS PUMP OF ATOSIBAN 6.75 MG (0.9 ML) 30 MIN BEFORE TRANSPLANT
     Route: 042
  3. HUMAN CHORIONIC GONADOTROPIN [Suspect]
     Active Substance: GONADOTROPHIN, CHORIONIC
     Indication: Ovulation induction
     Dosage: 5000 U
     Route: 065
  4. CHORIOGONADOTROPIN ALFA [Suspect]
     Active Substance: CHORIOGONADOTROPIN ALFA
     Indication: Ovulation induction
     Dosage: 75 U, QOD
     Route: 030
  5. TRIPTORELIN [Suspect]
     Active Substance: TRIPTORELIN
     Indication: Artificial menopause
     Dosage: 3.75 MG (FOR 25 - 28 DAYS)
     Route: 065

REACTIONS (3)
  - Premature labour [Unknown]
  - Maternal exposure before pregnancy [Unknown]
  - Product use in unapproved indication [Unknown]
